FAERS Safety Report 4382335-4 (Version None)
Quarter: 2004Q2

REPORT INFORMATION
  Report Type: 
  Country: None (occurrence: None)
  Receive Date: 20040615
  Receipt Date: 20040601
  Transmission Date: 20050107
  Serious: Yes (Hospitalization)
  Sender: FDA-Public Use
  Company Number: S04-USA-03152-01

PATIENT
  Age: 88 Year
  Sex: Male

DRUGS (5)
  1. LEXAPRO [Suspect]
     Indication: DEPRESSION
     Dosage: 10 MG PO
     Route: 048
     Dates: start: 20040428, end: 20040517
  2. NORVASC [Concomitant]
  3. PROTONIX [Concomitant]
  4. WARFARIN SODIUM [Concomitant]
  5. LORAZEPAM [Concomitant]

REACTIONS (6)
  - BLOOD CHLORIDE DECREASED [None]
  - BLOOD POTASSIUM DECREASED [None]
  - CONFUSIONAL STATE [None]
  - DEPRESSION [None]
  - DRUG EFFECT DECREASED [None]
  - HYPONATRAEMIA [None]
